FAERS Safety Report 7193101-9 (Version None)
Quarter: 2010Q4

REPORT INFORMATION
  Report Type: 
  Country: None (occurrence: None)
  Receive Date: 20101223
  Receipt Date: 20100831
  Transmission Date: 20110411
  Serious: No
  Sender: FDA-Public Use
  Company Number: US-AMGEN-KDL435201

PATIENT

DRUGS (9)
  1. ENBREL [Suspect]
     Indication: PRODUCT USED FOR UNKNOWN INDICATION
     Dosage: 50 MG, QWK
     Route: 058
  2. ACETAMINOPHEN/DEXTROMETHORPHAN HBR/PSEUDOEPHEDRINE HCL [Concomitant]
     Dosage: UNK UNK, UNK
  3. TOPIRAMATE [Concomitant]
     Dosage: 200 MG, UNK
  4. FLUTICASONE PROPIONATE [Concomitant]
     Dosage: 50 MG, UNK
  5. FEXOFENADINE HCL [Concomitant]
     Dosage: UNK UNK, UNK
  6. ATENOLOL [Concomitant]
     Dosage: 50 MG, UNK
  7. FLUTICASONE PROPIONATE [Concomitant]
     Dosage: .05 %, UNK
  8. HYDROXYZINE HCL [Concomitant]
     Dosage: 10 MG, UNK
  9. IPRATROPIUM BROMIDE/ALBUTEROL SULFATE [Concomitant]

REACTIONS (1)
  - RASH GENERALISED [None]
